FAERS Safety Report 9468250 (Version 1)
Quarter: 2013Q3

REPORT INFORMATION
  Report Type: Spontaneous
  Country: GB (occurrence: GB)
  Receive Date: 20130821
  Receipt Date: 20130821
  Transmission Date: 20140515
  Serious: Yes (Congenital Anomaly)
  Sender: FDA-Public Use
  Company Number: GB-TEVA-425735ISR

PATIENT
  Sex: Female

DRUGS (4)
  1. FOLIC ACID [Suspect]
     Indication: SUPPLEMENTATION THERAPY
     Dosage: DURING FIRST SEMESTER
     Route: 064
  2. LAMICTAL [Suspect]
     Indication: EPILEPSY
     Dosage: 450 MILLIGRAM DAILY; 225 MG TWICE PER DAY
     Route: 064
     Dates: start: 201107, end: 201207
  3. LAMICTAL [Suspect]
     Dosage: 300 MILLIGRAM DAILY; AT THE TIME OF CONCEPTION
     Route: 064
     Dates: start: 2011
  4. LAMICTAL [Suspect]
     Route: 064
     Dates: start: 2003

REACTIONS (4)
  - Benign congenital hypotonia [Not Recovered/Not Resolved]
  - Exposure during breast feeding [Unknown]
  - Foetal exposure during pregnancy [Unknown]
  - Developmental delay [Unknown]
